FAERS Safety Report 11091234 (Version 2)
Quarter: 2015Q2

REPORT INFORMATION
  Report Type: Spontaneous
  Country: US (occurrence: US)
  Receive Date: 20150505
  Receipt Date: 20150511
  Transmission Date: 20150821
  Serious: No
  Sender: FDA-Public Use
  Company Number: US-PFIZER INC-2015149767

PATIENT
  Age: 68 Year
  Sex: Male

DRUGS (1)
  1. SUTENT [Suspect]
     Active Substance: SUNITINIB MALATE
     Dosage: 37.5 MG, DAILY (STRENGTH 12.5 MG 3 CAPSULES DAILY)
     Route: 048

REACTIONS (2)
  - Blood pressure abnormal [Recovering/Resolving]
  - Urticaria [Recovering/Resolving]
